FAERS Safety Report 5165390-3 (Version None)
Quarter: 2006Q4

REPORT INFORMATION
  Report Type: 
  Country: None (occurrence: None)
  Receive Date: 20061206
  Receipt Date: 20061117
  Transmission Date: 20070319
  Serious: Yes (Hospitalization)
  Sender: FDA-Public Use
  Company Number: JP-AVENTIS-200613625JP

PATIENT
  Age: 54 Year
  Sex: Male
  Weight: 76.6 kg

DRUGS (7)
  1. TAXOTERE [Suspect]
     Indication: NON-SMALL CELL LUNG CANCER
     Route: 041
     Dates: start: 20061108, end: 20061108
  2. TS-1 [Concomitant]
     Indication: NON-SMALL CELL LUNG CANCER
     Route: 048
     Dates: start: 20061108, end: 20061115
  3. MEDICON                            /00048102/ [Concomitant]
     Indication: COUGH
     Route: 048
     Dates: start: 20061103, end: 20061115
  4. METHYCOBAL                         /00056201/ [Concomitant]
     Indication: HYPOAESTHESIA
     Route: 048
     Dates: start: 20061115, end: 20061115
  5. DECADRON [Concomitant]
     Indication: PROPHYLAXIS OF NAUSEA AND VOMITING
     Route: 041
     Dates: start: 20061108, end: 20061108
  6. DECADRON [Concomitant]
     Indication: PROPHYLAXIS
     Route: 048
     Dates: start: 20061108, end: 20061110
  7. ZOFRAN [Concomitant]
     Indication: PROPHYLAXIS OF NAUSEA AND VOMITING
     Route: 041
     Dates: start: 20061108, end: 20061108

REACTIONS (1)
  - CEREBRAL INFARCTION [None]
